FAERS Safety Report 9678071 (Version 2)
Quarter: 2013Q4

REPORT INFORMATION
  Report Type: Spontaneous
  Country: CA (occurrence: CA)
  Receive Date: 20131108
  Receipt Date: 20131108
  Transmission Date: 20140711
  Serious: Yes (Hospitalization)
  Sender: FDA-Public Use
  Company Number: CA-SANOFI-AVENTIS-2013SA050683

PATIENT
  Age: 84 Year
  Sex: Female
  Weight: 64 kg

DRUGS (18)
  1. FERRLECIT [Suspect]
     Indication: IRON DEFICIENCY ANAEMIA
     Dosage: OVER 2 HOURS
     Route: 042
     Dates: start: 20130516, end: 20130516
  2. RAMIPRIL [Concomitant]
     Route: 065
  3. ARANESP [Concomitant]
     Dosage: FORM: SOLUTION INTRAVENOUS
     Route: 065
  4. HYDRALAZINE [Concomitant]
     Route: 065
  5. VITAMIN D [Concomitant]
     Dosage: DOSE:10000 UNIT(S)
     Route: 065
  6. AMIODARONE [Concomitant]
     Route: 048
  7. BISOPROLOL [Concomitant]
     Route: 048
  8. ATORVASTATIN [Concomitant]
     Route: 048
  9. EZETROL [Concomitant]
     Route: 065
  10. LANSOPRAZOLE [Concomitant]
     Route: 065
  11. LASIX [Concomitant]
     Route: 048
  12. SYNTHROID [Concomitant]
     Route: 065
  13. ONE-ALPHA [Concomitant]
     Route: 065
  14. CALCIUM [Concomitant]
     Route: 065
  15. PYRIDOXINE HYDROCHLORIDE [Concomitant]
     Route: 065
  16. AMLODIPINE [Concomitant]
     Route: 048
  17. VIGAMOX [Concomitant]
     Dosage: 1 DROP EVERY 2 HOURS RIGHT EYE
     Route: 047
  18. NITRO-DUR [Concomitant]
     Dosage: 0.8MG/HOUR EVERY 12 HOURS; FORM: PATCH, EXTENDED RELEASE

REACTIONS (11)
  - Diarrhoea [Recovered/Resolved]
  - Feeling cold [Recovered/Resolved]
  - Asthenia [Recovered/Resolved]
  - Gastric dilatation [Recovered/Resolved]
  - Pallor [Recovered/Resolved]
  - Vomiting [Recovered/Resolved]
  - Abdominal pain upper [Recovered/Resolved]
  - Hypotension [Recovered/Resolved]
  - Chest pain [Recovered/Resolved]
  - Swelling [Recovered/Resolved]
  - Pain [Recovered/Resolved]
